FAERS Safety Report 24400215 (Version 2)
Quarter: 2024Q4

REPORT INFORMATION
  Report Type: Spontaneous
  Country: US (occurrence: US)
  Receive Date: 20241005
  Receipt Date: 20241010
  Transmission Date: 20250115
  Serious: Yes (Death, Life-Threatening, Hospitalization, Other)
  Sender: GLENMARK
  Company Number: US-GLENMARK PHARMACEUTICALS-2024GMK094480

PATIENT

DRUGS (2)
  1. VERAPAMIL [Interacting]
     Active Substance: VERAPAMIL HYDROCHLORIDE
     Indication: Hypertension
     Dosage: UNK (SUSTAINED RELEASE (SR)
     Route: 065
  2. LISINOPRIL [Interacting]
     Active Substance: LISINOPRIL
     Indication: Hypertension
     Dosage: UNK
     Route: 065

REACTIONS (7)
  - BRASH syndrome [Fatal]
  - Drug interaction [Fatal]
  - Blood lactic acid increased [Fatal]
  - Intentional overdose [Fatal]
  - Bundle branch block left [Fatal]
  - Atrioventricular dissociation [Fatal]
  - Intestinal ischaemia [Fatal]
